FAERS Safety Report 9109329 (Version 1)
Quarter: 2013Q1

REPORT INFORMATION
  Report Type: Spontaneous
  Country: US (occurrence: US)
  Receive Date: 20130222
  Receipt Date: 20130222
  Transmission Date: 20140127
  Serious: Yes (Hospitalization)
  Sender: FDA-Public Use
  Company Number: US-MYLANLABS-2013S1003155

PATIENT
  Age: 45 Year
  Sex: Male

DRUGS (4)
  1. WARFARIN [Suspect]
     Route: 065
  2. PHENYTOIN [Concomitant]
     Route: 065
  3. DILTIAZEM [Concomitant]
     Route: 065
  4. SALBUTAMOL [Concomitant]
     Route: 065

REACTIONS (3)
  - Gangrene [Recovered/Resolved with Sequelae]
  - Coagulation time prolonged [Recovered/Resolved with Sequelae]
  - Purpura [Recovered/Resolved with Sequelae]
